FAERS Safety Report 12770981 (Version 2)
Quarter: 2016Q4

REPORT INFORMATION
  Report Type: Spontaneous
  Country: JP (occurrence: JP)
  Receive Date: 20160922
  Receipt Date: 20161012
  Transmission Date: 20170207
  Serious: Yes (Hospitalization)
  Sender: FDA-Public Use
  Company Number: JP-PFIZER INC-2016398681

PATIENT
  Sex: Male

DRUGS (1)
  1. XALKORI [Suspect]
     Active Substance: CRIZOTINIB
     Indication: LUNG NEOPLASM MALIGNANT
     Dosage: 500 MG, DAILY
     Route: 048
     Dates: start: 20160621, end: 201609

REACTIONS (2)
  - Pneumocystis jirovecii pneumonia [Recovered/Resolved]
  - Neoplasm progression [Unknown]

NARRATIVE: CASE EVENT DATE: 20160923
